FAERS Safety Report 13292237 (Version 3)
Quarter: 2017Q2

REPORT INFORMATION
  Report Type: Report from Study
  Country: US (occurrence: US)
  Receive Date: 20170303
  Receipt Date: 20170614
  Transmission Date: 20170830
  Serious: Yes (Hospitalization)
  Sender: FDA-Public Use
  Company Number: US-ASTRAZENECA-2015SF17913

PATIENT
  Age: 21561 Day
  Sex: Female
  Weight: 56.8 kg

DRUGS (93)
  1. GLYCOPYRRONIUM + FORMOTEROL FUMARATE INHALATION AEROSOL (PEARL) [Suspect]
     Active Substance: GLYCOPYRRONIUM\FORMOTEROL FUMARATE
     Indication: CHRONIC OBSTRUCTIVE PULMONARY DISEASE
     Dosage: 14.4/9.6 ???G EX-ACTUATOR BID
     Route: 055
     Dates: start: 20151029, end: 20151115
  2. PREDNISONE. [Concomitant]
     Active Substance: PREDNISONE
     Indication: CHRONIC OBSTRUCTIVE PULMONARY DISEASE
     Route: 048
     Dates: start: 20151026, end: 20151029
  3. PREDNISONE. [Concomitant]
     Active Substance: PREDNISONE
     Indication: PNEUMONIA
     Route: 048
     Dates: start: 20151214, end: 20151216
  4. SOLU-MEDROL [Concomitant]
     Active Substance: METHYLPREDNISOLONE SODIUM SUCCINATE
     Indication: CHRONIC OBSTRUCTIVE PULMONARY DISEASE
     Route: 042
     Dates: start: 20151026, end: 20151026
  5. MIRALAX [Concomitant]
     Active Substance: POLYETHYLENE GLYCOL 3350
     Indication: CHRONIC OBSTRUCTIVE PULMONARY DISEASE
     Route: 048
     Dates: start: 20151028, end: 20151029
  6. PERCOCET 5-325MG [Concomitant]
     Indication: PNEUMONIA
     Route: 048
     Dates: start: 20151119, end: 20151121
  7. FLUCONAZOLE. [Concomitant]
     Active Substance: FLUCONAZOLE
     Indication: VULVOVAGINAL CANDIDIASIS
     Route: 048
     Dates: start: 20151221, end: 20151221
  8. FLOVENT [Concomitant]
     Active Substance: FLUTICASONE PROPIONATE
     Route: 055
     Dates: start: 20150928, end: 20151011
  9. FORADIL [Concomitant]
     Active Substance: FORMOTEROL FUMARATE
     Route: 055
     Dates: start: 20151029, end: 20151108
  10. PREDNISONE. [Concomitant]
     Active Substance: PREDNISONE
     Indication: PNEUMONIA
     Route: 048
     Dates: start: 20151026, end: 20151029
  11. PREDNISONE. [Concomitant]
     Active Substance: PREDNISONE
     Indication: PNEUMONIA
     Route: 048
     Dates: start: 20151217, end: 20151219
  12. PREDNISONE. [Concomitant]
     Active Substance: PREDNISONE
     Indication: PNEUMONIA
     Route: 048
     Dates: start: 20151220, end: 20151222
  13. ALPRAZOLAM. [Concomitant]
     Active Substance: ALPRAZOLAM
     Indication: CHRONIC OBSTRUCTIVE PULMONARY DISEASE
     Dosage: 0.5MG AS REQUIRED
     Route: 048
     Dates: start: 20151119, end: 20151120
  14. DUONEB [Concomitant]
     Active Substance: ALBUTEROL SULFATE\IPRATROPIUM BROMIDE
     Indication: PNEUMONIA
     Route: 055
     Dates: start: 20151119, end: 20151119
  15. LEVONOX [Concomitant]
     Active Substance: ENOXAPARIN
     Indication: CHRONIC OBSTRUCTIVE PULMONARY DISEASE
     Route: 058
     Dates: start: 20151026, end: 20151029
  16. HABITROL [Concomitant]
     Active Substance: NICOTINE
     Indication: CHRONIC OBSTRUCTIVE PULMONARY DISEASE
     Route: 062
     Dates: start: 20151026, end: 20151029
  17. HABITROL [Concomitant]
     Active Substance: NICOTINE
     Indication: PNEUMONIA
     Route: 062
     Dates: start: 20151119, end: 20151121
  18. BENZONATATE. [Concomitant]
     Active Substance: BENZONATATE
     Indication: CHRONIC OBSTRUCTIVE PULMONARY DISEASE
     Route: 048
     Dates: start: 20151026, end: 20151029
  19. NORCO 7.5-325MG [Concomitant]
     Indication: CHRONIC OBSTRUCTIVE PULMONARY DISEASE
     Dosage: 1.0DF AS REQUIRED
     Route: 048
     Dates: start: 20151026, end: 20151028
  20. NORCO 7.5-325MG [Concomitant]
     Indication: PNEUMONIA
     Dosage: 1.0DF AS REQUIRED
     Route: 048
     Dates: start: 20151026, end: 20151028
  21. SYMBICORT [Concomitant]
     Active Substance: BUDESONIDE\FORMOTEROL FUMARATE DIHYDRATE
     Indication: CHRONIC OBSTRUCTIVE PULMONARY DISEASE
     Route: 055
     Dates: start: 20151027, end: 20151029
  22. KETOROLAC [Concomitant]
     Active Substance: KETOROLAC\KETOROLAC TROMETHAMINE
     Indication: PNEUMONIA
     Route: 030
     Dates: start: 20151119, end: 20151119
  23. PREDNISONE. [Concomitant]
     Active Substance: PREDNISONE
     Indication: PNEUMONIA
     Route: 048
     Dates: start: 20151119, end: 20151121
  24. PREDNISONE. [Concomitant]
     Active Substance: PREDNISONE
     Indication: CHRONIC OBSTRUCTIVE PULMONARY DISEASE
     Route: 048
     Dates: start: 20151220, end: 20151222
  25. PREDNISONE. [Concomitant]
     Active Substance: PREDNISONE
     Indication: PNEUMONIA
     Route: 048
     Dates: start: 20151223, end: 20151225
  26. DUONEB [Concomitant]
     Active Substance: ALBUTEROL SULFATE\IPRATROPIUM BROMIDE
     Indication: CHRONIC OBSTRUCTIVE PULMONARY DISEASE
     Route: 055
     Dates: start: 20151026, end: 20151026
  27. PANTOPRAZOLE [Concomitant]
     Active Substance: PANTOPRAZOLE
     Indication: PNEUMONIA
     Route: 048
     Dates: start: 20151026, end: 20151029
  28. PANTOPRAZOLE [Concomitant]
     Active Substance: PANTOPRAZOLE
     Indication: PNEUMONIA
     Route: 048
     Dates: start: 20151119, end: 20151121
  29. HABITROL [Concomitant]
     Active Substance: NICOTINE
     Indication: PNEUMONIA
     Route: 062
     Dates: start: 20151026, end: 20151029
  30. CEPASTAT [Concomitant]
     Active Substance: PHENOL
     Indication: CHRONIC OBSTRUCTIVE PULMONARY DISEASE
     Dosage: 1.0DF AS REQUIRED
     Route: 048
     Dates: start: 20151027, end: 20151027
  31. MIRALAX [Concomitant]
     Active Substance: POLYETHYLENE GLYCOL 3350
     Indication: CHRONIC OBSTRUCTIVE PULMONARY DISEASE
     Route: 048
     Dates: start: 20151120, end: 20151121
  32. ONDANSETRON [Concomitant]
     Active Substance: ONDANSETRON
     Indication: PNEUMONIA
     Route: 042
     Dates: start: 20151119, end: 20151119
  33. IBUPROFEN. [Concomitant]
     Active Substance: IBUPROFEN
     Indication: ROTATOR CUFF SYNDROME
     Dosage: 800.0MG AS REQUIRED
     Route: 048
     Dates: start: 20151016
  34. FLOVENT [Concomitant]
     Active Substance: FLUTICASONE PROPIONATE
     Route: 055
     Dates: start: 20151029, end: 20151108
  35. PREDNISONE. [Concomitant]
     Active Substance: PREDNISONE
     Indication: PNEUMONIA
     Route: 048
     Dates: start: 20151114, end: 20151116
  36. PREDNISONE. [Concomitant]
     Active Substance: PREDNISONE
     Indication: CHRONIC OBSTRUCTIVE PULMONARY DISEASE
     Route: 048
     Dates: start: 20151117, end: 20151119
  37. ALPRAZOLAM. [Concomitant]
     Active Substance: ALPRAZOLAM
     Indication: PNEUMONIA
     Dosage: 0.5MG AS REQUIRED
     Route: 048
     Dates: start: 20151119, end: 20151120
  38. DUONEB [Concomitant]
     Active Substance: ALBUTEROL SULFATE\IPRATROPIUM BROMIDE
     Indication: CHRONIC OBSTRUCTIVE PULMONARY DISEASE
     Route: 055
     Dates: start: 20151119, end: 20151119
  39. ACETAMINOPHEN. [Concomitant]
     Active Substance: ACETAMINOPHEN
     Indication: CHRONIC OBSTRUCTIVE PULMONARY DISEASE
     Route: 048
     Dates: start: 20151026, end: 20151026
  40. METHOCARBAMOL. [Concomitant]
     Active Substance: METHOCARBAMOL
     Indication: PNEUMONIA
     Dosage: 50.0MG AS REQUIRED
     Route: 048
     Dates: start: 20151119, end: 20151121
  41. NORCO 7.5-325MG [Concomitant]
     Indication: PNEUMONIA
     Dosage: 1.0DF AS REQUIRED
     Route: 048
     Dates: start: 20151119, end: 20151119
  42. NACL 0.9% [Concomitant]
     Active Substance: SODIUM CHLORIDE
     Indication: CHRONIC OBSTRUCTIVE PULMONARY DISEASE
     Route: 042
     Dates: start: 20151027, end: 20151029
  43. MIRALAX [Concomitant]
     Active Substance: POLYETHYLENE GLYCOL 3350
     Indication: PNEUMONIA
     Route: 048
     Dates: start: 20151028, end: 20151029
  44. LEVAQUIN [Concomitant]
     Active Substance: LEVOFLOXACIN
     Indication: PNEUMONIA
     Route: 042
     Dates: start: 20151119, end: 20151119
  45. ROCEPHIN [Concomitant]
     Active Substance: CEFTRIAXONE SODIUM
     Indication: PNEUMONIA
     Route: 042
     Dates: start: 20151119, end: 20151121
  46. TRAMADOL. [Concomitant]
     Active Substance: TRAMADOL
     Indication: PNEUMONIA
     Route: 048
     Dates: start: 20151121
  47. LORAZEPAM. [Concomitant]
     Active Substance: LORAZEPAM
     Indication: ANXIETY
     Dosage: 0.5MG AS REQUIRED
     Route: 048
     Dates: start: 20130429
  48. HYDROCODONE-ACETAMINOPHEN 5-325MG [Concomitant]
     Indication: PNEUMONIA
     Dosage: 1.0DF AS REQUIRED
     Route: 048
     Dates: start: 20151128
  49. ADVAIR DISKUS [Concomitant]
     Active Substance: FLUTICASONE PROPIONATE\SALMETEROL XINAFOATE
     Route: 055
     Dates: start: 2013, end: 20150927
  50. PREDNISONE. [Concomitant]
     Active Substance: PREDNISONE
     Indication: CHRONIC OBSTRUCTIVE PULMONARY DISEASE
     Route: 048
     Dates: start: 20151119, end: 20151121
  51. PREDNISONE. [Concomitant]
     Active Substance: PREDNISONE
     Indication: CHRONIC OBSTRUCTIVE PULMONARY DISEASE
     Route: 048
     Dates: start: 20151217, end: 20151219
  52. PREDNISONE. [Concomitant]
     Active Substance: PREDNISONE
     Indication: CHRONIC OBSTRUCTIVE PULMONARY DISEASE
     Route: 048
     Dates: start: 20151223, end: 20151225
  53. TESSALON [Concomitant]
     Active Substance: BENZONATATE
     Route: 048
     Dates: start: 20151029
  54. PRILOSEC OTC [Concomitant]
     Active Substance: OMEPRAZOLE MAGNESIUM
     Route: 048
     Dates: start: 20140901
  55. ALBUTEROL. [Concomitant]
     Active Substance: ALBUTEROL
     Indication: CHRONIC OBSTRUCTIVE PULMONARY DISEASE
     Route: 055
     Dates: start: 20151026, end: 20151026
  56. LEVONOX [Concomitant]
     Active Substance: ENOXAPARIN
     Indication: PNEUMONIA
     Route: 058
     Dates: start: 20151026, end: 20151029
  57. ATARAX [Concomitant]
     Active Substance: HYDROXYZINE HYDROCHLORIDE
     Indication: PNEUMONIA
     Route: 048
     Dates: start: 20151119, end: 20151119
  58. CIPROFLOXACIN. [Concomitant]
     Active Substance: CIPROFLOXACIN
     Indication: URINARY TRACT INFECTION
     Route: 048
     Dates: start: 20151223, end: 20151230
  59. VENTOLIN HFA [Concomitant]
     Active Substance: ALBUTEROL SULFATE
     Indication: CHRONIC OBSTRUCTIVE PULMONARY DISEASE
  60. MONODOX [Concomitant]
     Active Substance: DOXYCYCLINE
     Route: 048
     Dates: start: 20151029
  61. ROBAXIN [Concomitant]
     Active Substance: METHOCARBAMOL
     Route: 048
     Dates: start: 20150901
  62. PROVENTIL [Concomitant]
     Active Substance: ALBUTEROL
     Dosage: 0.5ML AS REQUIRED
     Route: 055
  63. ALPRAZOLAM. [Concomitant]
     Active Substance: ALPRAZOLAM
     Indication: CHRONIC OBSTRUCTIVE PULMONARY DISEASE
     Route: 048
     Dates: start: 20151026, end: 20151029
  64. METHOCARBAMOL. [Concomitant]
     Active Substance: METHOCARBAMOL
     Indication: PNEUMONIA
     Route: 048
     Dates: start: 20151026, end: 20151029
  65. PANTOPRAZOLE [Concomitant]
     Active Substance: PANTOPRAZOLE
     Indication: CHRONIC OBSTRUCTIVE PULMONARY DISEASE
     Route: 048
     Dates: start: 20151026, end: 20151029
  66. PANTOPRAZOLE [Concomitant]
     Active Substance: PANTOPRAZOLE
     Indication: CHRONIC OBSTRUCTIVE PULMONARY DISEASE
     Route: 048
     Dates: start: 20151119, end: 20151121
  67. LEVONOX [Concomitant]
     Active Substance: ENOXAPARIN
     Indication: CHRONIC OBSTRUCTIVE PULMONARY DISEASE
     Route: 058
     Dates: start: 20151119, end: 20151121
  68. HABITROL [Concomitant]
     Active Substance: NICOTINE
     Indication: CHRONIC OBSTRUCTIVE PULMONARY DISEASE
     Route: 062
     Dates: start: 20151119, end: 20151121
  69. BENZONATATE. [Concomitant]
     Active Substance: BENZONATATE
     Indication: CHRONIC OBSTRUCTIVE PULMONARY DISEASE
     Route: 048
     Dates: start: 20151119, end: 20151121
  70. TEMAZEPAM. [Concomitant]
     Active Substance: TEMAZEPAM
     Indication: CHRONIC OBSTRUCTIVE PULMONARY DISEASE
     Route: 048
     Dates: start: 20151026, end: 20151029
  71. NORCO 7.5-325MG [Concomitant]
     Indication: CHRONIC OBSTRUCTIVE PULMONARY DISEASE
     Dosage: 1.0DF AS REQUIRED
     Route: 048
     Dates: start: 20151119, end: 20151119
  72. NACL 0.9% [Concomitant]
     Active Substance: SODIUM CHLORIDE
     Indication: PNEUMONIA
     Route: 042
     Dates: start: 20151027, end: 20151029
  73. MIRALAX [Concomitant]
     Active Substance: POLYETHYLENE GLYCOL 3350
     Indication: PNEUMONIA
     Route: 048
     Dates: start: 20151120, end: 20151121
  74. OMNIPAQUE [Concomitant]
     Active Substance: IOHEXOL
     Indication: PNEUMONIA
     Route: 042
     Dates: start: 20151119, end: 20151119
  75. AZITHROMYCIN ANHYDROUS. [Concomitant]
     Active Substance: AZITHROMYCIN ANHYDROUS
     Indication: PNEUMONIA
     Route: 042
     Dates: start: 20151119, end: 20151121
  76. FLUTICASONE. [Concomitant]
     Active Substance: FLUTICASONE
     Indication: PNEUMONIA
     Dosage: 220 AND 181G MICROGRAM(S) DAILY
     Route: 055
     Dates: start: 20151120, end: 20151121
  77. AUGMENTIN [Concomitant]
     Active Substance: AMOXICILLIN\CLAVULANATE POTASSIUM
     Indication: PNEUMONIA
     Route: 048
     Dates: start: 20151128, end: 20151203
  78. GLYCOPYRRONIUM + FORMOTEROL FUMARATE INHALATION AEROSOL (PEARL) [Suspect]
     Active Substance: GLYCOPYRRONIUM\FORMOTEROL FUMARATE
     Indication: CHRONIC OBSTRUCTIVE PULMONARY DISEASE
     Dosage: 14.4/9.6 ???G EX-ACTUATOR BID
     Route: 055
     Dates: start: 20151012, end: 20151026
  79. PREDNISONE. [Concomitant]
     Active Substance: PREDNISONE
     Indication: CHRONIC OBSTRUCTIVE PULMONARY DISEASE
     Route: 048
     Dates: start: 20151114, end: 20151116
  80. PREDNISONE. [Concomitant]
     Active Substance: PREDNISONE
     Indication: PNEUMONIA
     Route: 048
     Dates: start: 20151117, end: 20151119
  81. PREDNISONE. [Concomitant]
     Active Substance: PREDNISONE
     Indication: CHRONIC OBSTRUCTIVE PULMONARY DISEASE
     Route: 048
     Dates: start: 20151214, end: 20151216
  82. ALPRAZOLAM. [Concomitant]
     Active Substance: ALPRAZOLAM
     Indication: PNEUMONIA
     Route: 048
     Dates: start: 20151026, end: 20151029
  83. LEVONOX [Concomitant]
     Active Substance: ENOXAPARIN
     Indication: PNEUMONIA
     Route: 058
     Dates: start: 20151119, end: 20151121
  84. BENZONATATE. [Concomitant]
     Active Substance: BENZONATATE
     Indication: PNEUMONIA
     Route: 048
     Dates: start: 20151026, end: 20151029
  85. BENZONATATE. [Concomitant]
     Active Substance: BENZONATATE
     Indication: PNEUMONIA
     Route: 048
     Dates: start: 20151119, end: 20151121
  86. NACL 0.9% [Concomitant]
     Active Substance: SODIUM CHLORIDE
     Indication: CHRONIC OBSTRUCTIVE PULMONARY DISEASE
     Route: 042
     Dates: start: 20151119, end: 20151121
  87. NACL 0.9% [Concomitant]
     Active Substance: SODIUM CHLORIDE
     Indication: PNEUMONIA
     Route: 042
     Dates: start: 20151119, end: 20151121
  88. DUONEB [Concomitant]
     Active Substance: ALBUTEROL SULFATE\IPRATROPIUM BROMIDE
     Indication: PNEUMONIA
     Route: 055
     Dates: start: 20151026, end: 20151026
  89. METHOCARBAMOL. [Concomitant]
     Active Substance: METHOCARBAMOL
     Indication: CHRONIC OBSTRUCTIVE PULMONARY DISEASE
     Route: 048
     Dates: start: 20151026, end: 20151029
  90. METHOCARBAMOL. [Concomitant]
     Active Substance: METHOCARBAMOL
     Indication: CHRONIC OBSTRUCTIVE PULMONARY DISEASE
     Dosage: 50.0MG AS REQUIRED
     Route: 048
     Dates: start: 20151119, end: 20151121
  91. DOXYCYCLINE MONOHYDRATE [Concomitant]
     Active Substance: DOXYCYCLINE
     Indication: CHRONIC OBSTRUCTIVE PULMONARY DISEASE
     Dosage: 100.0MG AS REQUIRED
     Route: 048
     Dates: start: 20151026, end: 20151029
  92. ZOLPIDEM [Concomitant]
     Active Substance: ZOLPIDEM\ZOLPIDEM TARTRATE
     Indication: PNEUMONIA
     Route: 048
     Dates: start: 20151120, end: 20151120
  93. FORMOTEROL FUMARATE DIHYDRATE [Concomitant]
     Active Substance: FORMOTEROL FUMARATE DIHYDRATE
     Indication: PNEUMONIA
     Dosage: 12 AND 181G MICROGRAM(S) DAILY
     Route: 055
     Dates: start: 20151120, end: 20151121

REACTIONS (1)
  - Pneumonia [Recovering/Resolving]

NARRATIVE: CASE EVENT DATE: 20151114
